FAERS Safety Report 12417412 (Version 1)
Quarter: 2016Q2

REPORT INFORMATION
  Report Type: Spontaneous
  Country: BR (occurrence: BR)
  Receive Date: 20160530
  Receipt Date: 20160530
  Transmission Date: 20160815
  Serious: Yes (Other)
  Sender: FDA-Public Use
  Company Number: BR-JNJFOC-20140208448

PATIENT
  Age: 50 Year
  Sex: Female
  Weight: 81 kg

DRUGS (1)
  1. REMICADE [Suspect]
     Active Substance: INFLIXIMAB
     Indication: COLITIS
     Route: 042
     Dates: start: 20110603

REACTIONS (8)
  - Pruritus [Recovered/Resolved]
  - Tremor [Recovered/Resolved]
  - Lethargy [Recovered/Resolved]
  - Diarrhoea [Recovered/Resolved]
  - Fatigue [Recovered/Resolved]
  - Hypothermia [Recovered/Resolved]
  - Infusion related reaction [Unknown]
  - Pain in extremity [Recovered/Resolved]

NARRATIVE: CASE EVENT DATE: 20140124
